FAERS Safety Report 8315034 (Version 2)
Quarter: 2012Q4

REPORT INFORMATION
  Report Type: 
  Country: ES (occurrence: ES)
  Receive Date: 20111229
  Receipt Date: 20121015
  Transmission Date: 20130627
  Serious: Yes (Death, Hospitalization)
  Sender: FDA-Public Use
  Company Number: ES-RANBAXY-2011R1-51324

PATIENT
  Age: 36 Year
  Sex: Female

DRUGS (4)
  1. IBUPROFEN [Suspect]
     Indication: EAR PAIN
     Dosage: UNK
     Route: 065
  2. IBUPROFEN [Suspect]
     Indication: MYALGIA
     Dosage: UNK
     Route: 048
  3. IBUPROFEN [Suspect]
     Indication: ALLERGY TEST
     Dosage: 50 mg, single
     Route: 065
  4. AMOXICILLIN [Concomitant]
     Indication: EAR INFECTION
     Dosage: 500 mg, tid
     Route: 048

REACTIONS (1)
  - Encephalitis [Recovered/Resolved]
